FAERS Safety Report 8185447-2 (Version None)
Quarter: 2012Q1

REPORT INFORMATION
  Report Type: 
  Country: None (occurrence: None)
  Receive Date: 20120305
  Receipt Date: 20120229
  Transmission Date: 20120608
  Serious: Yes (Death)
  Sender: FDA-Public Use
  Company Number: JP-PFIZER INC-2012053138

PATIENT
  Age: 62 Year
  Sex: Female

DRUGS (2)
  1. VFEND [Suspect]
     Indication: INFECTION PROPHYLAXIS
     Dosage: 400 MG/DAY
  2. METHYLPREDNISOLONE/SUCCINATE SODIUM [Concomitant]

REACTIONS (1)
  - ZYGOMYCOSIS [None]
